FAERS Safety Report 24752633 (Version 2)
Quarter: 2024Q4

REPORT INFORMATION
  Report Type: Spontaneous
  Country: PT (occurrence: PT)
  Receive Date: 20241219
  Receipt Date: 20241226
  Transmission Date: 20250114
  Serious: Yes (Hospitalization, Other)
  Sender: ALEXION PHARMACEUTICALS
  Company Number: PT-KERNPHARMA-202402850

PATIENT
  Age: 85 Year

DRUGS (3)
  1. TICAGRELOR [Suspect]
     Active Substance: TICAGRELOR
     Indication: Antiplatelet therapy
     Route: 065
  2. ASPIRIN [Suspect]
     Active Substance: ASPIRIN
     Indication: Antiplatelet therapy
     Route: 065
  3. ASPIRIN [Suspect]
     Active Substance: ASPIRIN

REACTIONS (6)
  - Haemorrhoidal haemorrhage [Recovered/Resolved]
  - Syncope [Unknown]
  - Hypovolaemic shock [Unknown]
  - Volvulus [Unknown]
  - Intestinal obstruction [Unknown]
  - Metabolic acidosis [Unknown]
